FAERS Safety Report 5489418-6 (Version None)
Quarter: 2007Q4

REPORT INFORMATION
  Report Type: 
  Country: None (occurrence: None)
  Receive Date: 20071018
  Receipt Date: 20071012
  Transmission Date: 20080405
  Serious: Yes (Other)
  Sender: FDA-Public Use
  Company Number: CA-ASTRAZENECA-2007UW23989

PATIENT
  Age: 80 Year
  Sex: Female

DRUGS (12)
  1. SEROQUEL [Suspect]
     Route: 048
  2. ZYPREXA [Suspect]
     Route: 048
  3. SIMVASTATIN [Concomitant]
  4. TRAZODONE HCL [Concomitant]
  5. ACETAMINOPHEN [Concomitant]
  6. BISOPROLOL FUMARATE [Concomitant]
  7. CITALOPRAM HYDROBROMIDE [Concomitant]
  8. EXELON [Concomitant]
  9. FUROSEMIDE [Concomitant]
  10. NPH INSULIN [Concomitant]
  11. LEVOTHYROXINE SODIUM [Concomitant]
  12. NITROGLYCERIN [Concomitant]

REACTIONS (5)
  - CHEST PAIN [None]
  - COUGH [None]
  - GASTROINTESTINAL HAEMORRHAGE [None]
  - HAEMATOCHEZIA [None]
  - PANCYTOPENIA [None]
